FAERS Safety Report 20842328 (Version 1)
Quarter: 2022Q2

REPORT INFORMATION
  Report Type: Report from Study
  Country: US (occurrence: US)
  Receive Date: 20220518
  Receipt Date: 20220518
  Transmission Date: 20220721
  Serious: No
  Sender: FDA-Public Use
  Company Number: US-Ipsen Biopharmaceuticals, Inc.-2022-13081

PATIENT
  Age: 58 Year

DRUGS (1)
  1. SOMATULINE DEPOT [Suspect]
     Active Substance: LANREOTIDE ACETATE
     Indication: Carcinoid tumour
     Dosage: 120MG/0.5ML
     Route: 058
     Dates: start: 202110

REACTIONS (8)
  - Injection site mass [Recovering/Resolving]
  - Asthenia [Recovering/Resolving]
  - Dry skin [Recovering/Resolving]
  - Pruritus [Recovering/Resolving]
  - Depression [Recovering/Resolving]
  - Red blood cell count decreased [Recovering/Resolving]
  - Blood glucose decreased [Recovering/Resolving]
  - Unevaluable event [Unknown]

NARRATIVE: CASE EVENT DATE: 20211001
